FAERS Safety Report 9734447 (Version 2)
Quarter: 2013Q4

REPORT INFORMATION
  Report Type: Spontaneous
  Country: US (occurrence: US)
  Receive Date: 20131206
  Receipt Date: 20131206
  Transmission Date: 20140711
  Serious: Yes (Hospitalization, Other)
  Sender: FDA-Public Use
  Company Number: US-BEH-2013038619

PATIENT
  Age: 41 Year
  Sex: Female
  Weight: 126 kg

DRUGS (28)
  1. PRIVIGEN [Suspect]
     Indication: IMMUNODEFICIENCY COMMON VARIABLE
     Dosage: 5 GM VIAL;10 GM DAILY FOR 3 NON-CONSECUTIVE DAYS EVERY 30 DAYS
     Route: 042
  2. PRIVIGEN [Suspect]
     Dosage: 10 GM VIAL;10 GM DAILY FOR 3 NON-CONSECUTIVE DAYS EVERY 30 DAYS
     Route: 042
  3. PRIVIGEN [Suspect]
     Route: 042
  4. PRIVIGEN [Suspect]
     Dosage: 10 G ONCE DAILY FOR 3 NON CONSECUTIVE DAYS EVERY 30 DAYS OVER 2 HOURS
     Route: 042
  5. AMBIEN [Concomitant]
  6. PREDNISONE [Concomitant]
  7. COUMADIN [Concomitant]
  8. OXYGEN [Concomitant]
  9. PROMETHAZINE [Concomitant]
  10. ACETAMINOPHEN [Concomitant]
  11. DIPHENHYDRAMINE [Concomitant]
  12. HEPARIN [Concomitant]
  13. SODIUM CHLORIDE [Concomitant]
  14. EPIPEN [Concomitant]
  15. LMX [Concomitant]
  16. KLONOPIN [Concomitant]
  17. PROTONIX [Concomitant]
  18. SOMA [Concomitant]
  19. ZOLOFT [Concomitant]
  20. ADVAIR [Concomitant]
  21. TOPROL [Concomitant]
  22. MIRAPEX [Concomitant]
  23. TOPAMAX [Concomitant]
  24. DILAUDID [Concomitant]
  25. DUONEB [Concomitant]
  26. DURAGESIC [Concomitant]
  27. METHOTREXATE [Concomitant]
  28. RITUXAN [Concomitant]

REACTIONS (5)
  - Thrombosis [Unknown]
  - Pneumonia [Not Recovered/Not Resolved]
  - Lower respiratory tract infection [Not Recovered/Not Resolved]
  - Pleurisy [Unknown]
  - Lung infection [Unknown]
